FAERS Safety Report 6849563-7 (Version None)
Quarter: 2010Q3

REPORT INFORMATION
  Report Type: 
  Country: None (occurrence: None)
  Receive Date: 20100716
  Receipt Date: 20071001
  Transmission Date: 20110219
  Serious: No
  Sender: FDA-Public Use
  Company Number: US-PFIZER INC-2007083226

PATIENT
  Sex: Female
  Weight: 120.5 kg

DRUGS (13)
  1. CHANTIX [Suspect]
     Indication: SMOKING CESSATION THERAPY
     Route: 048
     Dates: start: 20070801, end: 20070924
  2. CITALOPRAM HYDROBROMIDE [Concomitant]
     Route: 048
  3. DOXEPIN HCL [Concomitant]
     Route: 048
  4. THEOPHYLLINE [Concomitant]
     Route: 048
  5. SPIRIVA [Concomitant]
     Indication: CHRONIC OBSTRUCTIVE PULMONARY DISEASE
  6. VERAPAMIL [Concomitant]
     Route: 048
  7. WARFARIN SODIUM [Concomitant]
     Indication: THROMBOSIS
     Route: 048
  8. VITAMINS [Concomitant]
     Route: 048
  9. COZAAR [Concomitant]
     Route: 048
  10. METFORMIN HCL [Concomitant]
     Route: 048
  11. MONTELUKAST SODIUM [Concomitant]
     Route: 048
  12. MULTI-VITAMINS [Concomitant]
     Route: 048
  13. THEOPHYLLINE [Concomitant]
     Route: 048

REACTIONS (2)
  - MALAISE [None]
  - NAUSEA [None]
